FAERS Safety Report 8482340-2 (Version None)
Quarter: 2012Q3

REPORT INFORMATION
  Report Type: 
  Country: None (occurrence: None)
  Receive Date: 20120702
  Receipt Date: 20120618
  Transmission Date: 20120928
  Serious: Yes (Other)
  Sender: FDA-Public Use
  Company Number: NG-MYLANLABS-2012S1012343

PATIENT

DRUGS (1)
  1. NAPROXEN [Suspect]
     Indication: ARTHRITIS
     Route: 065

REACTIONS (2)
  - OTOTOXICITY [None]
  - DEAFNESS [None]
